FAERS Safety Report 11660869 (Version 4)
Quarter: 2016Q3

REPORT INFORMATION
  Report Type: Report from Study
  Country: BR (occurrence: BR)
  Receive Date: 20151026
  Receipt Date: 20160810
  Transmission Date: 20161109
  Serious: Yes (Hospitalization, Other)
  Sender: FDA-Public Use
  Company Number: BR-ABBVIE-15K-020-1487610-00

PATIENT
  Age: 72 Year
  Sex: Female
  Weight: 56 kg

DRUGS (11)
  1. HUMIRA [Suspect]
     Active Substance: ADALIMUMAB
     Indication: ANKYLOSING SPONDYLITIS
     Route: 058
     Dates: start: 20150605
  2. PERIDAL [Concomitant]
     Indication: GASTRIC DISORDER
     Route: 048
  3. FLAVENOS [Concomitant]
     Indication: CARDIOVASCULAR DISORDER
     Route: 048
  4. LASIX [Concomitant]
     Active Substance: FUROSEMIDE
     Indication: SWELLING
     Route: 048
  5. CALCIFEROL [Concomitant]
     Active Substance: ERGOCALCIFEROL
     Indication: ANKYLOSING SPONDYLITIS
     Route: 048
  6. METHOTREXATE. [Concomitant]
     Active Substance: METHOTREXATE
     Indication: ANKYLOSING SPONDYLITIS
     Route: 048
     Dates: start: 201506
  7. DEPURA [Concomitant]
     Active Substance: CHOLECALCIFEROL
     Indication: VITAMIN D DEFICIENCY
     Route: 048
  8. NORTRIPTYLINE [Concomitant]
     Active Substance: NORTRIPTYLINE
     Indication: ANKYLOSING SPONDYLITIS
     Route: 048
     Dates: start: 2012
  9. FOLIC ACID. [Concomitant]
     Active Substance: FOLIC ACID
     Indication: ANKYLOSING SPONDYLITIS
     Route: 048
  10. DEFLAZACORT [Concomitant]
     Active Substance: DEFLAZACORT
     Indication: ANKYLOSING SPONDYLITIS
     Route: 048
     Dates: start: 201504
  11. GARDENAL [Concomitant]
     Active Substance: PHENOBARBITAL
     Indication: BRAIN INJURY
     Route: 048
     Dates: start: 1996

REACTIONS (8)
  - Constipation [Recovered/Resolved]
  - Malaise [Unknown]
  - Constipation [Recovered/Resolved]
  - Asthenia [Unknown]
  - Visual impairment [Unknown]
  - Gastrointestinal pain [Not Recovered/Not Resolved]
  - Colitis [Unknown]
  - Syncope [Recovered/Resolved]

NARRATIVE: CASE EVENT DATE: 201509
